FAERS Safety Report 17155880 (Version 2)
Quarter: 2020Q1

REPORT INFORMATION
  Report Type: Spontaneous
  Country: CZ (occurrence: CZ)
  Receive Date: 20191215
  Receipt Date: 20200124
  Transmission Date: 20200409
  Serious: Yes (Hospitalization, Other)
  Sender: FDA-Public Use
  Company Number: CZ-SA-2019SA342828

PATIENT
  Age: 67 Year
  Sex: Female
  Weight: 78 kg

DRUGS (13)
  1. PARACETAMOL [Concomitant]
     Active Substance: ACETAMINOPHEN
     Indication: SPINAL PAIN
  2. ZOLPIDEM TARTRATE. [Suspect]
     Active Substance: ZOLPIDEM TARTRATE
     Indication: INSOMNIA
     Dosage: 10 MG, QD
     Route: 065
  3. GUAIFENESIN. [Concomitant]
     Active Substance: GUAIFENESIN
     Indication: MUSCLE RELAXANT THERAPY
  4. GUAIFENESIN. [Concomitant]
     Active Substance: GUAIFENESIN
     Indication: ANXIOLYTIC THERAPY
  5. GUAIFENESIN. [Concomitant]
     Active Substance: GUAIFENESIN
     Indication: SPINAL PAIN
  6. INSULIN [Concomitant]
     Active Substance: INSULIN NOS
     Indication: DIABETES MELLITUS
     Dosage: UNK UNK, UNK
     Route: 065
  7. ZOLPIDEM TARTRATE. [Suspect]
     Active Substance: ZOLPIDEM TARTRATE
     Dosage: 20 MG, QD
     Route: 065
  8. GUAIFENESIN. [Concomitant]
     Active Substance: GUAIFENESIN
     Indication: PRODUCTIVE COUGH
     Dosage: UNK, UNK
     Route: 065
  9. ZOLPIDEM TARTRATE. [Suspect]
     Active Substance: ZOLPIDEM TARTRATE
     Dosage: 30 MG, QD
     Route: 065
  10. METFORMIN [Concomitant]
     Active Substance: METFORMIN HYDROCHLORIDE
     Indication: DIABETES MELLITUS
     Dosage: UNK, UNK
     Route: 065
  11. PARACETAMOL [Concomitant]
     Active Substance: ACETAMINOPHEN
     Indication: ANALGESIC THERAPY
     Dosage: UNK, UNK
     Route: 065
  12. KOFFEIN [Concomitant]
     Indication: CENTRAL NERVOUS SYSTEM STIMULATION
     Dosage: UNK, UNK
     Route: 065
  13. KOFFEIN [Concomitant]
     Indication: SPINAL PAIN

REACTIONS (11)
  - Abulia [Unknown]
  - Anxiety [Unknown]
  - Psychomotor retardation [Recovered/Resolved]
  - Decreased appetite [Recovering/Resolving]
  - Insomnia [Recovered/Resolved]
  - Anhedonia [Unknown]
  - Suicidal ideation [Recovered/Resolved]
  - Therapeutic product effect incomplete [Unknown]
  - Depressed mood [Recovered/Resolved]
  - Fatigue [Recovered/Resolved]
  - Intentional product use issue [Unknown]
